FAERS Safety Report 24384721 (Version 4)
Quarter: 2024Q4

REPORT INFORMATION
  Report Type: Report from Study
  Country: US (occurrence: US)
  Receive Date: 20241001
  Receipt Date: 20241031
  Transmission Date: 20250114
  Serious: Yes (Other)
  Sender: BAYER HEALTHCARE PHARMACEUTICALS INC.
  Company Number: US-BAYER-2024A131012

PATIENT
  Age: 57 Year
  Sex: Female

DRUGS (3)
  1. STIVARGA [Suspect]
     Active Substance: REGORAFENIB MONOHYDRATE
     Indication: Colon cancer
     Dosage: 40 MG, QD
     Route: 048
  2. STIVARGA [Suspect]
     Active Substance: REGORAFENIB MONOHYDRATE
     Indication: Colon cancer
     Dosage: 80 MG, QD
     Route: 048
  3. STIVARGA [Suspect]
     Active Substance: REGORAFENIB MONOHYDRATE
     Indication: Colon cancer
     Dosage: 160 MG, QD
     Route: 048

REACTIONS (16)
  - Neuropathy peripheral [Not Recovered/Not Resolved]
  - Haematochezia [Unknown]
  - Abdominal pain [Not Recovered/Not Resolved]
  - Depressed mood [Not Recovered/Not Resolved]
  - Epistaxis [Not Recovered/Not Resolved]
  - Constipation [Not Recovered/Not Resolved]
  - Haemorrhoids [Unknown]
  - Skin irritation [Not Recovered/Not Resolved]
  - Burning sensation [Not Recovered/Not Resolved]
  - Plantar erythema [Not Recovered/Not Resolved]
  - Headache [Not Recovered/Not Resolved]
  - Fatigue [Not Recovered/Not Resolved]
  - Abdominal pain upper [Not Recovered/Not Resolved]
  - Incorrect dose administered [None]
  - Liver disorder [Not Recovered/Not Resolved]
  - Musculoskeletal discomfort [Not Recovered/Not Resolved]

NARRATIVE: CASE EVENT DATE: 20241007
